FAERS Safety Report 4884936-3 (Version None)
Quarter: 2006Q1

REPORT INFORMATION
  Report Type: 
  Country: None (occurrence: None)
  Receive Date: 20060117
  Receipt Date: 20060104
  Transmission Date: 20060701
  Serious: No
  Sender: FDA-Public Use
  Company Number: 2006US000051

PATIENT
  Age: 52 Year
  Sex: Male

DRUGS (1)
  1. PROTOPIC [Suspect]
     Indication: DERMATITIS ATOPIC
     Dosage: TOPICAL
     Route: 061

REACTIONS (1)
  - PSEUDO LYMPHOMA [None]
